FAERS Safety Report 5892749-9 (Version None)
Quarter: 2008Q3

REPORT INFORMATION
  Report Type: 
  Country: None (occurrence: None)
  Receive Date: 20080923
  Receipt Date: 20080915
  Transmission Date: 20090109
  Serious: Yes (Other)
  Sender: FDA-Public Use
  Company Number: HU-BAYER-200826205GPV

PATIENT
  Age: 40 Year
  Sex: Female

DRUGS (2)
  1. MIRENA [Suspect]
     Indication: CONTRACEPTION
     Route: 015
  2. BISOPROLOL FUMARATE [Concomitant]
     Indication: HYPERTENSION
     Dates: start: 20041201

REACTIONS (1)
  - HEPATIC ENZYME INCREASED [None]
